FAERS Safety Report 21171940 (Version 4)
Quarter: 2023Q2

REPORT INFORMATION
  Report Type: Spontaneous
  Country: FR (occurrence: FR)
  Receive Date: 20220804
  Receipt Date: 20230605
  Transmission Date: 20230722
  Serious: Yes (Death, Hospitalization, Other)
  Sender: FDA-Public Use
  Company Number: FR-JAZZ-2022-FR-021742

PATIENT
  Age: 57 Year
  Sex: Female
  Weight: 76 kg

DRUGS (29)
  1. PANTOPRAZOLE [Suspect]
     Active Substance: PANTOPRAZOLE
     Indication: Abdominal pain upper
     Dosage: UNK, QD
     Route: 065
     Dates: end: 20220620
  2. METHYLPREDNISOLONE [Suspect]
     Active Substance: METHYLPREDNISOLONE
     Indication: Blood disorder
     Dosage: 70 MILLIGRAM, QD
     Route: 065
     Dates: start: 20220615
  3. METHYLPREDNISOLONE [Suspect]
     Active Substance: METHYLPREDNISOLONE
     Dosage: UNK
     Dates: start: 20220619, end: 20220620
  4. LINEZOLID [Suspect]
     Active Substance: LINEZOLID
     Dosage: UNK UNK, TID
     Dates: end: 20220620
  5. DEFITELIO [Suspect]
     Active Substance: DEFIBROTIDE SODIUM
     Indication: Venoocclusive disease
     Dosage: 450 MILLIGRAM, Q6HR (INFUSION)
     Route: 065
     Dates: start: 20220615
  6. MIDAZOLAM HYDROCHLORIDE [Suspect]
     Active Substance: MIDAZOLAM HYDROCHLORIDE
     Dosage: UNK (PRE-FILLED SYRINGE)
     Route: 065
     Dates: end: 20220620
  7. NOREPINEPHRINE [Suspect]
     Active Substance: NOREPINEPHRINE
     Indication: Hypertension
     Dosage: UNK
     Route: 065
     Dates: end: 20220620
  8. PROPOFOL [Suspect]
     Active Substance: PROPOFOL
     Dosage: UNK
     Route: 065
     Dates: end: 20220620
  9. AMBISOME [Suspect]
     Active Substance: AMPHOTERICIN B
     Indication: Fungal infection
     Dosage: 210 MG, 1X/DAY
     Route: 065
     Dates: end: 20220620
  10. NPLATE [Suspect]
     Active Substance: ROMIPLOSTIM
     Indication: Immune thrombocytopenia
     Dosage: 70 MICROGRAM, 1/WEEK
     Route: 065
  11. FUROSEMIDE [Suspect]
     Active Substance: FUROSEMIDE
     Dosage: UNK
     Route: 065
     Dates: end: 20220620
  12. SUFENTANIL [Suspect]
     Active Substance: SUFENTANIL
     Dosage: 250 UG
     Route: 065
     Dates: end: 20220620
  13. PENTACARINAT [Suspect]
     Active Substance: PENTAMIDINE ISETHIONATE
     Indication: Infection prophylaxis
     Dosage: UNK UNK, MONTHLY
     Route: 065
     Dates: end: 20220620
  14. CELLCEPT [Suspect]
     Active Substance: MYCOPHENOLATE MOFETIL
     Indication: Prophylaxis against transplant rejection
     Dosage: UNK, BID
     Route: 065
     Dates: start: 20220616
  15. CELLCEPT [Suspect]
     Active Substance: MYCOPHENOLATE MOFETIL
     Dosage: UNK UNK, BID
     Route: 065
     Dates: start: 20220619, end: 20220620
  16. METRONIDAZOLE [Suspect]
     Active Substance: METRONIDAZOLE
     Dosage: UNK UNK, TID
     Route: 065
     Dates: end: 20220620
  17. MORPHINE [Suspect]
     Active Substance: MORPHINE
     Indication: Pain
     Dosage: 10 MILLIGRAM, QD
     Route: 065
     Dates: start: 20220619
  18. CEFEPIME [Suspect]
     Active Substance: CEFEPIME HYDROCHLORIDE
     Indication: Febrile bone marrow aplasia
     Dosage: UNK UNK, Q8HR
     Route: 065
     Dates: end: 20220620
  19. TACROLIMUS [Suspect]
     Active Substance: TACROLIMUS
     Indication: Prophylaxis against transplant rejection
     Dosage: UNK UNK, QD
     Route: 065
     Dates: start: 20220522
  20. TACROLIMUS [Suspect]
     Active Substance: TACROLIMUS
     Dosage: UNK, QD
     Route: 065
     Dates: start: 20220619, end: 20220620
  21. URSODIOL [Suspect]
     Active Substance: URSODIOL
     Indication: Venoocclusive disease
     Dosage: UNK UNK, Q8HR
     Dates: start: 20220428
  22. PHLOROGLUCINOL [Suspect]
     Active Substance: PHLOROGLUCINOL
     Indication: Pain
     Dosage: UNK UNK, TID
     Route: 065
     Dates: end: 20220620
  23. CELLCEPT [Suspect]
     Active Substance: MYCOPHENOLATE MOFETIL
     Indication: Prophylaxis against transplant rejection
     Dosage: 0.5 DF, 2X/DAY
     Dates: start: 20220616
  24. NEFOPAM [Suspect]
     Active Substance: NEFOPAM
     Indication: Pain
     Dosage: 60 MG, 1X/DAY
     Dates: end: 20220620
  25. METOCLOPRAMIDE [Suspect]
     Active Substance: METOCLOPRAMIDE
     Indication: Nausea
     Dosage: UNK UNK, BID
     Route: 065
     Dates: end: 20220620
  26. DOLIPRANE [Concomitant]
     Active Substance: ACETAMINOPHEN
     Indication: Pain
     Dosage: UNK UNK, Q6HR
     Dates: start: 20220428, end: 20220619
  27. PREVYMIS [Concomitant]
     Active Substance: LETERMOVIR
     Indication: Infection prophylaxis
     Dosage: UNK UNK, QD
     Dates: start: 20220619
  28. TRAMADOL HYDROCHLORIDE [Concomitant]
     Active Substance: TRAMADOL HYDROCHLORIDE
     Indication: Pain
     Dosage: 100 MILLIGRAM, EVERY 6 HOURS
     Dates: start: 20220518, end: 20220619
  29. VALACYCLOVIR HYDROCHLORIDE [Concomitant]
     Active Substance: VALACYCLOVIR HYDROCHLORIDE
     Indication: Infection prophylaxis
     Dosage: UNK
     Dates: start: 20220619

REACTIONS (3)
  - Acute respiratory distress syndrome [Fatal]
  - Multiple organ dysfunction syndrome [Fatal]
  - Abdominal pain [Fatal]

NARRATIVE: CASE EVENT DATE: 20220618
